FAERS Safety Report 23202521 (Version 1)
Quarter: 2023Q4

REPORT INFORMATION
  Report Type: Spontaneous
  Country: DE (occurrence: DE)
  Receive Date: 20231120
  Receipt Date: 20231120
  Transmission Date: 20240110
  Serious: Yes (Congenital Anomaly, Other)
  Sender: FDA-Public Use
  Company Number: DE-BRISTOL-MYERS SQUIBB COMPANY-2023-162298

PATIENT
  Age: 55 Year
  Sex: Male

DRUGS (13)
  1. NINTEDANIB [Suspect]
     Active Substance: NINTEDANIB
     Indication: Product used for unknown indication
     Dates: start: 202204, end: 202207
  2. NINTEDANIB [Suspect]
     Active Substance: NINTEDANIB
     Dates: end: 202209
  3. DOCETAXEL [Suspect]
     Active Substance: DOCETAXEL\DOCETAXEL ANHYDROUS
     Indication: Product used for unknown indication
     Dates: start: 202204, end: 202207
  4. YERVOY [Suspect]
     Active Substance: IPILIMUMAB
     Indication: Non-small cell lung cancer
     Dates: end: 202309
  5. YERVOY [Suspect]
     Active Substance: IPILIMUMAB
     Dates: start: 202205, end: 202207
  6. NIVOLUMAB [Suspect]
     Active Substance: NIVOLUMAB
     Indication: Non-small cell lung cancer
     Dates: end: 202309
  7. NIVOLUMAB [Suspect]
     Active Substance: NIVOLUMAB
     Dates: start: 202205, end: 202207
  8. CARBOPLATIN [Concomitant]
     Active Substance: CARBOPLATIN
     Indication: Product used for unknown indication
     Dosage: 2 CYCLES
     Dates: start: 201710, end: 201711
  9. CARBOPLATIN [Concomitant]
     Active Substance: CARBOPLATIN
     Dosage: 2 CYCLES
     Dates: start: 202205, end: 202207
  10. PEMETREXED [Concomitant]
     Active Substance: PEMETREXED
     Indication: Product used for unknown indication
     Dosage: 2 CYCLES
     Dates: start: 201710, end: 201711
  11. VINORELBINE [Concomitant]
     Active Substance: VINORELBINE TARTRATE
     Indication: Product used for unknown indication
     Dosage: BODY SURFACE AREA DAY 1, DAY 8, DAY 29
  12. PACLITAXEL [Concomitant]
     Active Substance: PACLITAXEL
     Indication: Product used for unknown indication
     Dosage: 2 CYCLES
     Dates: start: 202205, end: 202207
  13. CISPLATIN [Concomitant]
     Active Substance: CISPLATIN
     Indication: Product used for unknown indication
     Dosage: BODY SURFACE AREA DAY 1 AND DAY 8

REACTIONS (10)
  - Non-small cell lung cancer [Unknown]
  - Cancer with a high tumour mutational burden [Unknown]
  - Gene mutation [Unknown]
  - Cytogenetic abnormality [Unknown]
  - Diarrhoea [Recovered/Resolved]
  - Off label use [Unknown]
  - HRD gene mutation assay positive [Unknown]
  - Fatigue [Unknown]
  - Myalgia [Unknown]
  - Arthralgia [Unknown]

NARRATIVE: CASE EVENT DATE: 20221001
